FAERS Safety Report 16003715 (Version 2)
Quarter: 2019Q2

REPORT INFORMATION
  Report Type: Spontaneous
  Country: CA (occurrence: CA)
  Receive Date: 20190226
  Receipt Date: 20190401
  Transmission Date: 20190711
  Serious: Yes (Other)
  Sender: FDA-Public Use
  Company Number: CA-CELLTRION INC.-2018CA023687

PATIENT

DRUGS (10)
  1. INFLECTRA [Suspect]
     Active Substance: INFLIXIMAB-DYYB
     Indication: COLITIS ULCERATIVE
     Dosage: 300 MG, EVERY 0, 2, 6 WEEKS, AND EVERY8 WEEKS
     Route: 042
     Dates: start: 20181009, end: 201810
  2. INFLECTRA [Suspect]
     Active Substance: INFLIXIMAB-DYYB
     Dosage: 300 MG, EVERY 0, 2, 6 WEEKS, AND EVERY 8 WEEKS
     Route: 042
     Dates: start: 20181121
  3. CIPROFLOXACIN. [Concomitant]
     Active Substance: CIPROFLOXACIN
     Dosage: UNK
     Dates: start: 2018, end: 2018
  4. SULFASALAZINE. [Concomitant]
     Active Substance: SULFASALAZINE
     Dosage: 3 G, BID
     Route: 048
     Dates: start: 201711
  5. METRONIDAZOLE. [Concomitant]
     Active Substance: METRONIDAZOLE
     Dosage: UNK
  6. INFLECTRA [Suspect]
     Active Substance: INFLIXIMAB-DYYB
     Indication: CROHN^S DISEASE
     Dosage: 300 MG, EVERY 0, 2, 6 WEEKS, AND EVERY 8 WEEKS
     Route: 042
     Dates: start: 20181023
  7. INFLECTRA [Suspect]
     Active Substance: INFLIXIMAB-DYYB
     Dosage: 300 MG, EVERY 0, 2, 6 WEEKS, AND EVERY 8 WEEKS
     Route: 042
     Dates: start: 20190314
  8. SPIRONOLACTONE. [Concomitant]
     Active Substance: SPIRONOLACTONE
     Dosage: 100 MG, DAILY
     Route: 048
     Dates: start: 201711
  9. INFLECTRA [Suspect]
     Active Substance: INFLIXIMAB-DYYB
     Dosage: 300 MG, EVERY 0, 2, 6 WEEKS, AND EVERY 8 WEEKS
     Route: 042
     Dates: start: 20190117
  10. CORTISONE [HYDROCORTISONE ACETATE] [Concomitant]
     Dosage: UNK, DAILY
     Route: 054

REACTIONS (20)
  - Headache [Not Recovered/Not Resolved]
  - Blood pressure fluctuation [Unknown]
  - Malaise [Not Recovered/Not Resolved]
  - Nasopharyngitis [Unknown]
  - Asthenopia [Unknown]
  - Hidradenitis [Unknown]
  - Oropharyngeal pain [Unknown]
  - Throat irritation [Unknown]
  - Drug resistance [Unknown]
  - Nasal congestion [Unknown]
  - Ear discomfort [Unknown]
  - Arthritis [Unknown]
  - Condition aggravated [Not Recovered/Not Resolved]
  - Chills [Unknown]
  - Dizziness [Not Recovered/Not Resolved]
  - Anxiety [Not Recovered/Not Resolved]
  - Fatigue [Not Recovered/Not Resolved]
  - Alopecia [Not Recovered/Not Resolved]
  - Pain [Not Recovered/Not Resolved]
  - Rhinorrhoea [Unknown]

NARRATIVE: CASE EVENT DATE: 2018
